FAERS Safety Report 16080169 (Version 1)
Quarter: 2019Q1

REPORT INFORMATION
  Report Type: Spontaneous
  Country: US (occurrence: US)
  Receive Date: 20190315
  Receipt Date: 20190315
  Transmission Date: 20190418
  Serious: No
  Sender: FDA-Public Use
  Company Number: US-STASON PHARMACEUTICALS, INC.-2064084

PATIENT
  Sex: Male

DRUGS (1)
  1. MERCAPTOPURINE. [Suspect]
     Active Substance: MERCAPTOPURINE

REACTIONS (1)
  - Arthralgia [None]
